FAERS Safety Report 4334630-2 (Version None)
Quarter: 2004Q2

REPORT INFORMATION
  Report Type: 
  Country: None (occurrence: None)
  Receive Date: 20040407
  Receipt Date: 20040401
  Transmission Date: 20050107
  Serious: Yes (Hospitalization)
  Sender: FDA-Public Use
  Company Number: IT-MERCK-0404ITA00007

PATIENT
  Age: 87 Year
  Sex: Male

DRUGS (7)
  1. ALFUZOSIN HYDROCHLORIDE [Suspect]
     Route: 048
     Dates: start: 20020226, end: 20040216
  2. MODURETIC 5-50 [Suspect]
     Route: 048
     Dates: start: 20000912, end: 20040220
  3. BECLOMETHASONE DIPROPIONATE [Suspect]
     Route: 055
     Dates: start: 20010912, end: 20040220
  4. CANDESARTAN CILEXETIL [Suspect]
     Route: 048
     Dates: start: 20010913, end: 20040216
  5. LEVOTHYROXINE SODIUM [Suspect]
     Route: 048
     Dates: start: 20000207, end: 20040220
  6. OMEPRAZOLE [Suspect]
     Route: 048
     Dates: start: 20010912, end: 20040216
  7. SALMETEROL XINAFOATE [Suspect]
     Route: 055
     Dates: start: 20000412, end: 20040220

REACTIONS (1)
  - RASH ERYTHEMATOUS [None]
